FAERS Safety Report 6575489-2 (Version None)
Quarter: 2010Q1

REPORT INFORMATION
  Report Type: 
  Country: None (occurrence: None)
  Receive Date: 20100209
  Receipt Date: 20100129
  Transmission Date: 20100710
  Serious: Yes (Life-Threatening)
  Sender: FDA-Public Use
  Company Number: IT-PFIZER INC-2010013444

PATIENT
  Age: 26 Year
  Sex: Female

DRUGS (2)
  1. ARACYTIN [Suspect]
     Indication: ACUTE MYELOID LEUKAEMIA
     Dosage: 28 G, TOTAL
     Route: 042
     Dates: start: 20090517, end: 20090525
  2. ZAVEDOS [Suspect]
     Indication: ACUTE MYELOID LEUKAEMIA
     Dosage: 64 MG, TOTAL
     Route: 042
     Dates: start: 20090519, end: 20090526

REACTIONS (6)
  - DIARRHOEA [None]
  - HAEMOPTYSIS [None]
  - HEPATIC FAILURE [None]
  - MUCOSAL INFLAMMATION [None]
  - PLEURAL EFFUSION [None]
  - PULMONARY MYCOSIS [None]
